FAERS Safety Report 6917495-1 (Version None)
Quarter: 2010Q3

REPORT INFORMATION
  Report Type: 
  Country: None (occurrence: None)
  Receive Date: 20100806
  Receipt Date: 20100723
  Transmission Date: 20110219
  Serious: Yes (Hospitalization)
  Sender: FDA-Public Use
  Company Number: 2010-00775

PATIENT
  Age: 76 Year
  Sex: Male
  Weight: 99 kg

DRUGS (9)
  1. SIMVASTATIN [Suspect]
     Indication: PRODUCT USED FOR UNKNOWN INDICATION
     Dosage: , ORAL
     Route: 048
     Dates: start: 20090603, end: 20100715
  2. ASPIRIN [Concomitant]
  3. DOXAZOSIN [Concomitant]
  4. FELODIPINE [Concomitant]
  5. FUROSEMIDE [Concomitant]
  6. GLICLAZIDE [Concomitant]
  7. LOSARTAN POTASSIUM [Concomitant]
  8. METFORMIN HCL [Concomitant]
  9. SILDENAFIL CITRATE [Concomitant]

REACTIONS (4)
  - MYOPATHY [None]
  - MYOSITIS [None]
  - NECK PAIN [None]
  - PAIN IN EXTREMITY [None]
